FAERS Safety Report 10155414 (Version 1)
Quarter: 2014Q2

REPORT INFORMATION
  Report Type: Spontaneous
  Country: US (occurrence: US)
  Receive Date: 20140506
  Receipt Date: 20140506
  Transmission Date: 20141212
  Serious: Yes (Hospitalization)
  Sender: FDA-Public Use
  Company Number: CHPA2014US006057

PATIENT
  Age: 62 Year
  Sex: Female

DRUGS (2)
  1. EXCEDRIN TENSION HEADACHE [Suspect]
     Indication: TENSION HEADACHE
     Dosage: 2 ONCE OR TWICE IN A DAY
     Route: 048
  2. EXCEDRIN MIGRAINE [Suspect]
     Indication: MIGRAINE
     Dosage: 2 DF, PRN

REACTIONS (3)
  - Pulmonary embolism [Recovered/Resolved]
  - Dyspnoea [Recovered/Resolved]
  - Contusion [Recovered/Resolved]
